FAERS Safety Report 11995279 (Version 2)
Quarter: 2016Q2

REPORT INFORMATION
  Report Type: Spontaneous
  Country: JP (occurrence: JP)
  Receive Date: 20160203
  Receipt Date: 20160628
  Transmission Date: 20160815
  Serious: Yes (Death, Hospitalization)
  Sender: FDA-Public Use
  Company Number: JP-TAIHO ONCOLOGY INC-JPTT160056

PATIENT
  Age: 77 Year
  Sex: Male
  Weight: 69 kg

DRUGS (13)
  1. JANUVIA [Concomitant]
     Active Substance: SITAGLIPTIN PHOSPHATE
     Dosage: DETAILS NOT REPORTED
     Route: 048
  2. SALOBEL [Concomitant]
     Active Substance: ALLOPURINOL
     Dosage: DETAILS NOT REPORTED
     Route: 048
  3. LIPOVAS [Concomitant]
     Active Substance: PRAVASTATIN SODIUM
     Dosage: DETAILS NOT REPORTED
     Route: 048
  4. WARFARIN [Concomitant]
     Active Substance: WARFARIN
     Dosage: DETAILS NOT REPORTED
     Route: 048
  5. AMINOLEBAN [Concomitant]
     Active Substance: AMINO ACIDS
     Dosage: DETAILS NOT REPORTED
     Route: 042
  6. LONSURF [Suspect]
     Active Substance: TIPIRACIL HYDROCHLORIDE\TRIFLURIDINE
     Indication: COLON CANCER STAGE IV
     Dosage: DETAILS NOT REPORTED
     Route: 048
     Dates: start: 20151104, end: 20160110
  7. MAGLAX [Concomitant]
     Active Substance: MAGNESIUM OXIDE
     Dosage: DETAILS NOT REPORTED
     Route: 048
  8. OLMETEC [Concomitant]
     Active Substance: OLMESARTAN MEDOXOMIL
     Dosage: DETAILS NOT REPORTED
     Route: 048
  9. LANIRAPID [Concomitant]
     Active Substance: METILDIGOXIN
     Dosage: DETAILS NOT REPORTED
     Route: 048
  10. LIVACT [Concomitant]
     Active Substance: AMINO ACIDS
     Dosage: DETAILS NOT REPORTED
     Route: 048
  11. AMARYL [Concomitant]
     Active Substance: GLIMEPIRIDE
     Dosage: DETAILS NOT REPORTED
     Route: 048
  12. TAKELDA [Concomitant]
     Active Substance: ASPIRIN\LANSOPRAZOLE
     Dosage: DETAILS NOT REPORTED
     Route: 048
  13. AMLODIN [Concomitant]
     Active Substance: AMLODIPINE BESYLATE
     Dosage: DETAILS NOT REPORTED
     Route: 048

REACTIONS (3)
  - Colon cancer [Fatal]
  - Renal disorder [Not Recovered/Not Resolved]
  - Pneumonia [Fatal]

NARRATIVE: CASE EVENT DATE: 20160118
